FAERS Safety Report 23762101 (Version 1)
Quarter: 2024Q2

REPORT INFORMATION
  Report Type: Spontaneous
  Country: US (occurrence: None)
  Receive Date: 20240418
  Receipt Date: 20240418
  Transmission Date: 20240716
  Serious: Yes (Hospitalization)
  Sender: FDA-Public Use
  Company Number: None

PATIENT
  Sex: 0

DRUGS (1)
  1. WELIREG [Suspect]
     Active Substance: BELZUTIFAN
     Dosage: 80 MG DAILY ORAL?
     Route: 048

REACTIONS (1)
  - Acute respiratory failure [None]

NARRATIVE: CASE EVENT DATE: 20240308
